FAERS Safety Report 17840887 (Version 1)
Quarter: 2020Q2

REPORT INFORMATION
  Report Type: Spontaneous
  Country: US (occurrence: US)
  Receive Date: 20200529
  Receipt Date: 20200529
  Transmission Date: 20200714
  Serious: No
  Sender: FDA-Public Use
  Company Number: US-BAUSCH-BL-2020-014127

PATIENT
  Age: 20 Year
  Sex: Female
  Weight: 68.1 kg

DRUGS (3)
  1. CLARITIN [Concomitant]
     Active Substance: LORATADINE
     Indication: PRODUCT USED FOR UNKNOWN INDICATION
     Dosage: AS NEEDED
     Route: 048
  2. ALAWAY [Suspect]
     Active Substance: KETOTIFEN FUMARATE
     Indication: EYE DISORDER
     Dosage: START DATE: SIX TO SEVEN YEARS AGO?ONE DROP IN EACH EYE; REPEAT AFTER AN HOUR OR TWO AS NEEDED
     Route: 047
  3. MIRENA [Concomitant]
     Active Substance: LEVONORGESTREL
     Indication: PRODUCT USED FOR UNKNOWN INDICATION
     Dosage: INTRAUTERINE DEVICE (IUD)

REACTIONS (6)
  - Physical product label issue [Unknown]
  - Eye pruritus [Recovered/Resolved]
  - Inappropriate schedule of product administration [Unknown]
  - Eye pain [Recovered/Resolved]
  - Accidental exposure to product packaging [Unknown]
  - Product quality issue [Unknown]

NARRATIVE: CASE EVENT DATE: 20200511
